FAERS Safety Report 24695445 (Version 1)
Quarter: 2024Q4

REPORT INFORMATION
  Report Type: Spontaneous
  Country: GB (occurrence: GB)
  Receive Date: 20241204
  Receipt Date: 20241204
  Transmission Date: 20250115
  Serious: Yes (Other)
  Sender: CELLTRION
  Company Number: GB-TAKEDA-2024TUS114081

PATIENT

DRUGS (2)
  1. ADALIMUMAB [Suspect]
     Active Substance: ADALIMUMAB
     Indication: Crohn^s disease
     Route: 065
  2. TEDUGLUTIDE [Suspect]
     Active Substance: TEDUGLUTIDE
     Indication: Product used for unknown indication
     Dosage: UNK /ADDITIONAL INFORMATION ON DRUG (FREE TEXT): ALCOHOL SWAB,NEEDLES,PRE-FILLED SYRINGE,SYRINGES
     Route: 065

REACTIONS (5)
  - Cardiac failure [Unknown]
  - Hypervolaemia [Unknown]
  - Feeling abnormal [Unknown]
  - Dehydration [Unknown]
  - Dyspnoea [Unknown]
